FAERS Safety Report 10335864 (Version 1)
Quarter: 2014Q3

REPORT INFORMATION
  Report Type: Spontaneous
  Country: US (occurrence: US)
  Receive Date: 20140723
  Receipt Date: 20140723
  Transmission Date: 20150326
  Serious: No
  Sender: FDA-Public Use
  Company Number: US-BRISTOL-MYERS SQUIBB COMPANY-19173350

PATIENT
  Age: 83 Year
  Sex: Female
  Weight: 53.51 kg

DRUGS (7)
  1. MULTIVITAMINS [Concomitant]
     Active Substance: VITAMINS
  2. VITAMIN E [Concomitant]
     Active Substance: .ALPHA.-TOCOPHEROL
  3. LISINOPRIL. [Concomitant]
     Active Substance: LISINOPRIL
  4. CALCIUM [Concomitant]
     Active Substance: CALCIUM
  5. VITAMIN B [Concomitant]
     Active Substance: VITAMIN B
  6. COUMADIN [Suspect]
     Active Substance: WARFARIN SODIUM
     Indication: THROMBOSIS
  7. VITAMIN D [Concomitant]
     Active Substance: CHOLECALCIFEROL

REACTIONS (7)
  - Fatigue [Unknown]
  - Dyspnoea [Unknown]
  - Contusion [Unknown]
  - Joint swelling [Unknown]
  - Weight decreased [Unknown]
  - Malaise [Unknown]
  - Abdominal discomfort [Not Recovered/Not Resolved]
